FAERS Safety Report 19449045 (Version 8)
Quarter: 2021Q4

REPORT INFORMATION
  Report Type: Report from Study
  Country: US (occurrence: None)
  Receive Date: 20210622
  Receipt Date: 20211124
  Transmission Date: 20220303
  Serious: Yes (Hospitalization)
  Sender: FDA-Public Use
  Company Number: US-ROCHE-2849780

PATIENT
  Age: 60 Year
  Sex: Male
  Weight: 113.6 kg

DRUGS (36)
  1. ATEZOLIZUMAB [Suspect]
     Active Substance: ATEZOLIZUMAB
     Indication: Skin cancer
     Route: 042
     Dates: start: 20210414
  2. ATEZOLIZUMAB [Suspect]
     Active Substance: ATEZOLIZUMAB
     Route: 042
     Dates: start: 20210506
  3. ATEZOLIZUMAB [Suspect]
     Active Substance: ATEZOLIZUMAB
     Route: 042
     Dates: start: 20210526
  4. ATEZOLIZUMAB [Suspect]
     Active Substance: ATEZOLIZUMAB
     Route: 042
     Dates: start: 20210729
  5. ATEZOLIZUMAB [Suspect]
     Active Substance: ATEZOLIZUMAB
     Route: 042
     Dates: start: 20210819, end: 20210819
  6. EFINEPTAKIN ALFA [Suspect]
     Active Substance: EFINEPTAKIN ALFA
     Indication: Skin cancer
     Route: 030
     Dates: start: 20210414
  7. EFINEPTAKIN ALFA [Suspect]
     Active Substance: EFINEPTAKIN ALFA
     Route: 030
     Dates: start: 20210526
  8. EFINEPTAKIN ALFA [Suspect]
     Active Substance: EFINEPTAKIN ALFA
     Route: 030
     Dates: start: 20210729
  9. EFINEPTAKIN ALFA [Suspect]
     Active Substance: EFINEPTAKIN ALFA
     Route: 030
     Dates: start: 20210819
  10. ALLOPURINOL [Concomitant]
     Active Substance: ALLOPURINOL
     Indication: Gout
     Dates: start: 20190909
  11. LISINOPRIL [Concomitant]
     Active Substance: LISINOPRIL
     Indication: Hypertension
     Dates: start: 20190922
  12. ATORVASTATIN [Concomitant]
     Active Substance: ATORVASTATIN
     Indication: Hyperlipidaemia
     Dates: start: 20190922
  13. ONDANSETRON [Concomitant]
     Active Substance: ONDANSETRON
     Indication: Nausea
     Dates: start: 20200511, end: 20200526
  14. ONDANSETRON [Concomitant]
     Active Substance: ONDANSETRON
     Indication: Vomiting
     Dates: start: 20210605, end: 20210629
  15. LORAZEPAM [Concomitant]
     Active Substance: LORAZEPAM
     Indication: Insomnia
     Dates: start: 20210324, end: 20210528
  16. LORAZEPAM [Concomitant]
     Active Substance: LORAZEPAM
     Dates: start: 20210528, end: 20210701
  17. LORAZEPAM [Concomitant]
     Active Substance: LORAZEPAM
     Dates: start: 20210701
  18. MIRALAX [Concomitant]
     Active Substance: POLYETHYLENE GLYCOL 3350
     Indication: Constipation
  19. MAGNESIUM CITRATE [Concomitant]
     Active Substance: MAGNESIUM CITRATE
     Indication: Constipation
     Dates: start: 20210509
  20. PROCHLORPERAZINE [Concomitant]
     Active Substance: PROCHLORPERAZINE
     Dates: start: 20210526, end: 20210629
  21. PROCHLORPERAZINE [Concomitant]
     Active Substance: PROCHLORPERAZINE
     Dates: start: 20210528, end: 20210528
  22. OLANZAPINE [Concomitant]
     Active Substance: OLANZAPINE
     Indication: Nausea
     Dates: start: 20210528, end: 20210604
  23. OLANZAPINE [Concomitant]
     Active Substance: OLANZAPINE
     Indication: Vomiting
  24. ENOXAPARIN [Concomitant]
     Active Substance: ENOXAPARIN
     Dates: start: 20210606, end: 20210607
  25. ACETAMINOPHEN [Concomitant]
     Active Substance: ACETAMINOPHEN
     Indication: Myalgia
     Dates: start: 20210604
  26. IBUPROFEN [Concomitant]
     Active Substance: IBUPROFEN
     Indication: Myalgia
     Dates: start: 20210604
  27. GADOBUTROL [Concomitant]
     Active Substance: GADOBUTROL
     Route: 042
     Dates: start: 20210605
  28. IOHEXOL [Concomitant]
     Active Substance: IOHEXOL
     Dosage: 150 MILILITER 30 MILITER
     Route: 042
     Dates: start: 20210610
  29. BACLOFEN [Concomitant]
     Active Substance: BACLOFEN
     Route: 048
     Dates: start: 20210615
  30. MEGASTROL [Concomitant]
     Indication: Decreased appetite
     Route: 048
     Dates: start: 20210616
  31. MEGASTROL [Concomitant]
     Dates: start: 20210629
  32. MIDAZOLAM [Concomitant]
     Active Substance: MIDAZOLAM
     Route: 042
     Dates: start: 20210621
  33. LIDOCAINE [Concomitant]
     Active Substance: LIDOCAINE
     Route: 042
     Dates: start: 20210621
  34. FENTANYL [Concomitant]
     Active Substance: FENTANYL
     Dosage: 50 ONCE
     Route: 042
     Dates: start: 20210621
  35. ESCITALOPRAM [Concomitant]
     Active Substance: ESCITALOPRAM OXALATE
     Indication: Depression
     Route: 048
     Dates: start: 20210701
  36. GLYCOLIC ACID [Concomitant]
     Active Substance: GLYCOLIC ACID
     Dates: start: 20210512

REACTIONS (3)
  - Dehydration [Recovering/Resolving]
  - Acute kidney injury [Recovering/Resolving]
  - Ill-defined disorder [Recovering/Resolving]

NARRATIVE: CASE EVENT DATE: 20210605
